FAERS Safety Report 17149705 (Version 1)
Quarter: 2019Q4

REPORT INFORMATION
  Report Type: Spontaneous
  Country: DE (occurrence: DE)
  Receive Date: 20191213
  Receipt Date: 20191213
  Transmission Date: 20200122
  Serious: Yes (Hospitalization)
  Sender: FDA-Public Use
  Company Number: DE-ACCORD-165469

PATIENT
  Age: 74 Year
  Sex: Male
  Weight: 83 kg

DRUGS (8)
  1. FOLINIC ACID [Suspect]
     Active Substance: LEUCOVORIN
     Indication: PRODUCT USED FOR UNKNOWN INDICATION
     Dosage: NK MG / KG / KG, MOST RECENTLY ON 28.06.2018, SOLUTION FOR INJECTION / INFUSION
     Route: 042
  2. LOPERAMIDE [Concomitant]
     Active Substance: LOPERAMIDE
     Dosage: 2 MG, NEED, CAPSULES
     Route: 048
  3. CISPLATIN. [Suspect]
     Active Substance: CISPLATIN
     Indication: PRODUCT USED FOR UNKNOWN INDICATION
     Route: 042
  4. DEXAMETHASONE. [Concomitant]
     Active Substance: DEXAMETHASONE
     Dosage: 8 MG, 1-0-0-0, ONLY 1-2 DAYS AFTER THERAPY, TABLETS
     Route: 048
  5. ATORVASTATIN [Concomitant]
     Active Substance: ATORVASTATIN
     Dosage: 20 MG, 0-0-1-0, TABLETS
     Route: 048
  6. FLUOROURACIL. [Suspect]
     Active Substance: FLUOROURACIL
     Indication: PRODUCT USED FOR UNKNOWN INDICATION
     Dosage: NK MG / KG / KG, MOST RECENTLY ON 28.06.2018, SOLUTION FOR INJECTION / INFUSION
     Route: 042
  7. CALCIMAGON-D3 [Concomitant]
     Active Substance: CALCIUM\CHOLECALCIFEROL
     Dosage: NK MG, 1-0-0-0, CHEWABLE TABLETS
     Route: 048
  8. ONDANSETRON [Concomitant]
     Active Substance: ONDANSETRON
     Dosage: 8 MG, 1-0-1-0, NEED, TABLETS
     Route: 048

REACTIONS (3)
  - Pyrexia [Unknown]
  - Chills [Unknown]
  - Cough [Unknown]
